FAERS Safety Report 9643155 (Version 3)
Quarter: 2013Q4

REPORT INFORMATION
  Report Type: Report from Study
  Country: DE (occurrence: DE)
  Receive Date: 20131024
  Receipt Date: 20131226
  Transmission Date: 20140711
  Serious: Yes (Hospitalization, Other)
  Sender: FDA-Public Use
  Company Number: PHHY2013DE117841

PATIENT
  Sex: Female
  Weight: 64 kg

DRUGS (12)
  1. ICL670A [Suspect]
     Indication: MYELODYSPLASTIC SYNDROME
     Dosage: 250 MG, PER DAY
     Route: 048
     Dates: start: 20121127
  2. ICL670A [Suspect]
     Dosage: 500 MG, BID
     Route: 048
     Dates: start: 20121204, end: 20130104
  3. ICL670A [Suspect]
     Dosage: 250 MG, PER DAY
     Route: 048
     Dates: start: 20130105, end: 20131017
  4. PREDNISOLUT [Concomitant]
     Dosage: 200 MG, QD
     Dates: start: 20121204, end: 20130608
  5. MAALOXAN [Concomitant]
     Dosage: UNK UKN, UNK
     Dates: start: 20121217
  6. XYLOCAINE [Concomitant]
     Dosage: WHEN NEEDED
     Dates: start: 20121217, end: 20130104
  7. VIANI [Concomitant]
     Dosage: 50 UG, BID
     Dates: start: 20121126
  8. OMEPRAZOLE [Concomitant]
     Dosage: 40 MG, QD
     Dates: start: 20121126
  9. CEFUROXIME [Concomitant]
     Dosage: 500 MG, QD
     Dates: start: 20130604, end: 20130608
  10. VERAPAMIL [Concomitant]
     Dosage: 360 MG, QD
  11. TRAMAL [Concomitant]
     Dosage: WHEN NEEDED
     Dates: start: 20130916
  12. METOCLOPRAMIDE [Concomitant]
     Dosage: UNK UKN, UNK

REACTIONS (7)
  - Acute myeloid leukaemia [Not Recovered/Not Resolved]
  - Sepsis [Recovered/Resolved]
  - Pyrexia [Recovered/Resolved]
  - Febrile neutropenia [Recovered/Resolved]
  - Genitourinary tract infection [Recovered/Resolved]
  - Oral herpes [Recovered/Resolved]
  - Cardiomyopathy [Not Recovered/Not Resolved]
